FAERS Safety Report 7752173-0 (Version None)
Quarter: 2011Q3

REPORT INFORMATION
  Report Type: 
  Country: None (occurrence: None)
  Receive Date: 20110915
  Receipt Date: 20110909
  Transmission Date: 20111222
  Serious: No
  Sender: FDA-Public Use
  Company Number: US-PFIZER INC-2011212669

PATIENT
  Sex: Male
  Weight: 90.703 kg

DRUGS (3)
  1. MECLIZINE HCL [Suspect]
     Indication: DIZZINESS
     Dosage: 125 UG, DAILY
     Dates: start: 20090101, end: 20090101
  2. LEVOTHYROXINE SODIUM [Suspect]
     Indication: HYPOTHYROIDISM
     Dosage: UNK
     Dates: start: 20080101
  3. ACETYLSALICYLIC ACID [Concomitant]
     Dosage: 81 MG,  4-5 TIMES A WEEK

REACTIONS (2)
  - SOMNOLENCE [None]
  - FATIGUE [None]
